FAERS Safety Report 10029821 (Version 1)
Quarter: 2014Q1

REPORT INFORMATION
  Report Type: Spontaneous
  Country: US (occurrence: None)
  Receive Date: 20140320
  Receipt Date: 20140320
  Transmission Date: 20141002
  Serious: Yes (Hospitalization)
  Sender: FDA-Public Use
  Company Number: UTC-044822

PATIENT
  Age: 86 Year
  Sex: Female
  Weight: 42 kg

DRUGS (3)
  1. TYVASO (0.6 MILLIGRAM/MILLILITERS, AEROSOL FOR INHALATION) (TREPROSTINIL SODIUM) [Suspect]
     Indication: PULMONARY ARTERIAL HYPERTENSION
     Route: 055
     Dates: start: 20140119
  2. ADCIRCA (TADALAFIL) [Concomitant]
  3. WARFARIN (WARFARIN) [Concomitant]

REACTIONS (4)
  - Haemorrhoids [None]
  - Rectal haemorrhage [None]
  - Asthenia [None]
  - Drug administration error [None]
